FAERS Safety Report 6268822-2 (Version None)
Quarter: 2009Q3

REPORT INFORMATION
  Report Type: 
  Country: None (occurrence: None)
  Receive Date: 20090710
  Receipt Date: 20090710
  Transmission Date: 20100115
  Serious: Yes (Life-Threatening, Hospitalization, Other)
  Sender: FDA-Public Use
  Company Number: None

PATIENT
  Age: 41 Year
  Sex: Female
  Weight: 93.441 kg

DRUGS (1)
  1. YASMIN [Suspect]
     Indication: UTERINE HAEMORRHAGE
     Dosage: DAILY PO
     Route: 048
     Dates: start: 20090213, end: 20090415

REACTIONS (3)
  - CEREBROVASCULAR ACCIDENT [None]
  - HEADACHE [None]
  - THROMBOSIS [None]
